FAERS Safety Report 21554453 (Version 1)
Quarter: 2022Q4

REPORT INFORMATION
  Report Type: Spontaneous
  Country: NL (occurrence: NL)
  Receive Date: 20221104
  Receipt Date: 20221104
  Transmission Date: 20230113
  Serious: Yes (Hospitalization)
  Sender: FDA-Public Use
  Company Number: None

PATIENT
  Sex: Female
  Weight: 65 kg

DRUGS (5)
  1. TRAMADOL [Suspect]
     Active Substance: TRAMADOL
     Indication: Pain
     Dosage: 1 PIECE PER DAY
     Route: 065
     Dates: start: 20210101, end: 20210108
  2. DULOXETINE [Suspect]
     Active Substance: DULOXETINE
     Indication: Neuralgia
     Dosage: 1 PIECE PER DAY
     Route: 065
     Dates: start: 20200210
  3. POLYETHYLENE GLYCOLS [Concomitant]
     Active Substance: POLYETHYLENE GLYCOLS
     Dosage: POWDER FOR DRINK
     Route: 065
  4. OMEPRAZOLE [Concomitant]
     Active Substance: OMEPRAZOLE
     Dosage: GASTRO-RESISTANT CAPSULE, 20 MG (MILLIGRAM)
     Route: 065
  5. NAPROXEN [Concomitant]
     Active Substance: NAPROXEN
     Dosage: GASTRO RESISTANT TABLET, 500MG
     Route: 065

REACTIONS (1)
  - Loss of consciousness [Recovering/Resolving]
